FAERS Safety Report 8794070 (Version 3)
Quarter: 2013Q2

REPORT INFORMATION
  Report Type: Spontaneous
  Country: US (occurrence: US)
  Receive Date: 20120918
  Receipt Date: 20130521
  Transmission Date: 20140414
  Serious: No
  Sender: FDA-Public Use
  Company Number: US-BIOGENIDEC-2012BI037092

PATIENT
  Age: 35 Year
  Sex: Female

DRUGS (1)
  1. TYSABRI [Suspect]
     Indication: MULTIPLE SCLEROSIS
     Route: 042
     Dates: start: 20061003, end: 20130402

REACTIONS (6)
  - Infusion site scar [Not Recovered/Not Resolved]
  - Poor venous access [Recovered/Resolved]
  - Gait disturbance [Recovered/Resolved]
  - Paraesthesia [Recovered/Resolved]
  - Urinary tract infection [Recovered/Resolved]
  - Drug effect decreased [Recovered/Resolved]
